FAERS Safety Report 19968557 (Version 1)
Quarter: 2021Q4

REPORT INFORMATION
  Report Type: Spontaneous
  Country: US (occurrence: US)
  Receive Date: 20211019
  Receipt Date: 20211019
  Transmission Date: 20220303
  Serious: No
  Sender: FDA-Public Use
  Company Number: US-BAYER-2021A225612

PATIENT
  Age: 73 Year
  Sex: Male

DRUGS (3)
  1. ALEVEX [Suspect]
     Active Substance: CAMPHOR (SYNTHETIC)\MENTHOL
     Indication: Pain
     Dosage: UNK UNK, TID
     Route: 061
     Dates: start: 202108, end: 202108
  2. ALEVE [Suspect]
     Active Substance: NAPROXEN SODIUM
     Indication: Pain
     Dosage: 1 DF
     Route: 048
  3. NAPROXEN [Concomitant]
     Active Substance: NAPROXEN

REACTIONS (2)
  - Abdominal discomfort [Unknown]
  - Drug ineffective [Unknown]
